FAERS Safety Report 6094846-4 (Version None)
Quarter: 2009Q1

REPORT INFORMATION
  Report Type: 
  Country: None (occurrence: None)
  Receive Date: 20090227
  Receipt Date: 20090217
  Transmission Date: 20090719
  Serious: Yes (Disabling)
  Sender: FDA-Public Use
  Company Number: NO-BAXTER-2009BH002590

PATIENT
  Age: 73 Year
  Sex: Female

DRUGS (5)
  1. CYCLOPHOSPHAMIDE [Suspect]
     Indication: LYMPHOMA
     Route: 065
  2. PREDNISOLONE [Suspect]
     Indication: LYMPHOMA
     Route: 065
  3. MABTHERA [Suspect]
     Indication: LYMPHOMA
     Dosage: ROUTE: IV INFUSION, FORM: INFUSION, RECEIVED FOUR INFUSIONS ONLY.
     Route: 042
  4. DOXORUBICIN HCL [Suspect]
     Indication: LYMPHOMA
     Route: 065
  5. VINCRISTINE SULFATE [Suspect]
     Indication: LYMPHOMA
     Route: 065

REACTIONS (1)
  - DIZZINESS [None]
